FAERS Safety Report 5003897-X (Version None)
Quarter: 2006Q2

REPORT INFORMATION
  Report Type: 
  Country: None (occurrence: None)
  Receive Date: 20060515
  Receipt Date: 20060503
  Transmission Date: 20061013
  Serious: Yes (Hospitalization)
  Sender: FDA-Public Use
  Company Number: MEDI-0004376

PATIENT
  Age: 5 Month
  Weight: 5.25 kg

DRUGS (6)
  1. SYNAGIS [Suspect]
     Indication: ANTIVIRAL PROPHYLAXIS
     Dosage: 78 + 31 + 44 + 56 + 66 + 78 MG, 1 IN 30 D, INTRAMUSCULAR- SEE IMAGE
     Route: 030
     Dates: start: 20051017, end: 20060206
  2. SYNAGIS [Suspect]
     Indication: ANTIVIRAL PROPHYLAXIS
     Dosage: 78 + 31 + 44 + 56 + 66 + 78 MG, 1 IN 30 D, INTRAMUSCULAR- SEE IMAGE
     Route: 030
     Dates: start: 20060306, end: 20060306
  3. SYNAGIS [Suspect]
     Indication: ANTIVIRAL PROPHYLAXIS
     Dosage: 78 + 31 + 44 + 56 + 66 + 78 MG, 1 IN 30 D, INTRAMUSCULAR- SEE IMAGE
     Route: 030
     Dates: start: 20051017
  4. SYNAGIS [Suspect]
     Indication: ANTIVIRAL PROPHYLAXIS
     Dosage: 78 + 31 + 44 + 56 + 66 + 78 MG, 1 IN 30 D, INTRAMUSCULAR- SEE IMAGE
     Route: 030
     Dates: start: 20051114
  5. SYNAGIS [Suspect]
     Indication: ANTIVIRAL PROPHYLAXIS
     Dosage: 78 + 31 + 44 + 56 + 66 + 78 MG, 1 IN 30 D, INTRAMUSCULAR- SEE IMAGE
     Route: 030
     Dates: start: 20051212
  6. SYNAGIS [Suspect]
     Indication: ANTIVIRAL PROPHYLAXIS
     Dosage: 78 + 31 + 44 + 56 + 66 + 78 MG, 1 IN 30 D, INTRAMUSCULAR- SEE IMAGE
     Route: 030
     Dates: start: 20060109

REACTIONS (2)
  - BRONCHIOLITIS [None]
  - PERTUSSIS [None]
